FAERS Safety Report 4353140-X (Version None)
Quarter: 2004Q2

REPORT INFORMATION
  Report Type: 
  Country: None (occurrence: None)
  Receive Date: 20040429
  Receipt Date: 20040216
  Transmission Date: 20050107
  Serious: No
  Sender: FDA-Public Use
  Company Number: 9610566-2004-00002

PATIENT
  Age: 83 Year
  Sex: Male

DRUGS (10)
  1. CALCIPROTRIOL (CALCIPOTRIOL) [Suspect]
     Indication: PSORIASIS
     Dates: start: 19830101
  2. CYCLOPENTOLATE HYDROCHLORIDE (CYCLOPHENTOALTE HYDROCHLORIDE) [Suspect]
     Indication: PREMEDICATION
     Dosage: 3 GTT, TOPICAL
     Route: 061
     Dates: start: 20031104, end: 20031104
  3. PHENYPHRINE (PHENYLEPHRINE) [Suspect]
     Indication: PREMEDICATION
     Dosage: 2 GTT, TOPICAL
     Route: 061
     Dates: start: 20031104, end: 20031104
  4. CHLORAMPHENICOL [Suspect]
     Indication: PREMEDICATION
     Dosage: 1 GTT, TOPICAL
     Route: 061
     Dates: start: 20031104, end: 20031104
  5. MINIMS BENOXINATE HYDROCHLORIDE (OXYBUPROCAINE HYDROCHLORIDE) [Suspect]
  6. BSS (SODIUM ACETATE, MAGNESIUM CHLORIDE ANHYDROUS, CALCIUM CHLORIDE HY [Suspect]
  7. OCUFEN (FLURBIPROFEN SODIUM) [Suspect]
     Indication: PREMEDICATION
     Dosage: 4 GTT, TOPICAL
     Route: 061
  8. LIDOCAINE [Suspect]
     Indication: ANAESTHESIA
     Dosage: 0.5 ML, TOPICAL
     Route: 061
  9. BETADINE [Suspect]
     Dosage: TOPICAL
     Route: 061
  10. BETNESOL (BETAMETHASONE SODIUM PHOSPHATE) [Suspect]

REACTIONS (3)
  - CATARACT OPERATION [None]
  - CORNEAL DISORDER [None]
  - LENS IMPLANT [None]
